FAERS Safety Report 10511156 (Version 1)
Quarter: 2014Q4

REPORT INFORMATION
  Report Type: Spontaneous
  Country: JP (occurrence: None)
  Receive Date: 20141008
  Receipt Date: 20141008
  Transmission Date: 20150528
  Serious: Yes (Hospitalization, Disabling)
  Sender: FDA-Public Use
  Company Number: 2014-002935

PATIENT
  Age: 28 Year
  Sex: Female

DRUGS (2)
  1. ACTONEL [Suspect]
     Active Substance: RISEDRONATE SODIUM
     Indication: OSTEOPOROSIS PROPHYLAXIS
     Route: 048
     Dates: start: 20140626
  2. CORTICOSTEROID NOS [Concomitant]
     Active Substance: CORTICOSTEROID NOS

REACTIONS (6)
  - Loss of consciousness [None]
  - Dyspnoea [None]
  - Dysphagia [None]
  - Sputum retention [None]
  - Gait disturbance [None]
  - Aphonia [None]

NARRATIVE: CASE EVENT DATE: 20140627
